FAERS Safety Report 8843029 (Version 2)
Quarter: 2012Q4

REPORT INFORMATION
  Report Type: 
  Country: CA (occurrence: CA)
  Receive Date: 20121016
  Receipt Date: 20121204
  Transmission Date: 20130627
  Serious: Yes (Hospitalization)
  Sender: FDA-Public Use
  Company Number: CA-VIIV HEALTHCARE LIMITED-A0996182A

PATIENT
  Age: 34 Year
  Sex: Male

DRUGS (7)
  1. KIVEXA [Suspect]
     Indication: HIV INFECTION
     Dosage: 1TAB Per day
     Route: 048
     Dates: start: 20100916, end: 20121001
  2. VENTOLIN [Concomitant]
     Dosage: 2PUFF As required
     Route: 055
  3. SYMBICORT [Concomitant]
     Dosage: 2PUFF As required
     Route: 055
  4. CIPRALEX [Concomitant]
     Dosage: 10MG Per day
     Route: 065
  5. VIAGRA [Concomitant]
     Dosage: 100MG Per day
     Route: 065
  6. WELLBUTRIN XL [Concomitant]
     Dosage: 300MG Per day
     Route: 065
  7. ACYCLOVIR [Concomitant]
     Dosage: 400MG Per day
     Route: 065

REACTIONS (4)
  - Intentional overdose [Unknown]
  - Vomiting [Recovered/Resolved]
  - Gastrointestinal disorder [Recovered/Resolved]
  - Liver function test abnormal [Not Recovered/Not Resolved]
